FAERS Safety Report 9089106 (Version 1)
Quarter: 2013Q1

REPORT INFORMATION
  Report Type: Spontaneous
  Country: US (occurrence: US)
  Receive Date: 20130131
  Receipt Date: 20130131
  Transmission Date: 20140127
  Serious: No
  Sender: FDA-Public Use
  Company Number: US-ABBOTT-12P-163-1014595-00

PATIENT
  Age: 28 Year
  Sex: Female

DRUGS (3)
  1. HUMIRA [Suspect]
     Indication: CROHN^S DISEASE
     Route: 058
     Dates: start: 20121119, end: 20121119
  2. HUMIRA [Suspect]
     Route: 058
     Dates: start: 20121120, end: 20121120
  3. HUMIRA [Suspect]
     Route: 058

REACTIONS (1)
  - Headache [Not Recovered/Not Resolved]
